FAERS Safety Report 8611163-6 (Version None)
Quarter: 2012Q3

REPORT INFORMATION
  Report Type: 
  Country: None (occurrence: None)
  Receive Date: 20120423
  Receipt Date: 20091014
  Transmission Date: 20120928
  Serious: Yes (Other)
  Sender: FDA-Public Use
  Company Number: PHEH2008US11627

PATIENT
  Age: 27 Year
  Sex: Male

DRUGS (8)
  1. PROGRAF [Suspect]
     Indication: RENAL TRANSPLANT
     Dosage: 15 MG, QD, ORAL
     Route: 048
     Dates: start: 20061110
  2. FLORINEF [Concomitant]
  3. MAGNESIUM HYDROXIDE TAB [Concomitant]
  4. IMMUNOSUPPRESANTS (NO INGREDIENTS/SUBSTANCES) [Concomitant]
  5. FOLIC ACID [Concomitant]
  6. TOPROL-XL [Concomitant]
  7. BACTRIM [Concomitant]
  8. EXJADE [Suspect]
     Indication: SICKLE CELL ANAEMIA
     Dosage: 250 MG, QD, ORAL
     Route: 048
     Dates: start: 20071008

REACTIONS (7)
  - CREATININE RENAL CLEARANCE DECREASED [None]
  - BLOOD CREATININE DECREASED [None]
  - BLOOD CREATININE INCREASED [None]
  - GLOMERULAR FILTRATION RATE DECREASED [None]
  - RENAL IMPAIRMENT [None]
  - HAEMOGLOBIN DECREASED [None]
  - BLOOD UREA INCREASED [None]
